FAERS Safety Report 16321426 (Version 1)
Quarter: 2019Q2

REPORT INFORMATION
  Report Type: Report from Study
  Country: US (occurrence: US)
  Receive Date: 20190516
  Receipt Date: 20190516
  Transmission Date: 20190711
  Serious: Yes (Death, Hospitalization, Other)
  Sender: FDA-Public Use
  Company Number: US-BRISTOL-MYERS SQUIBB COMPANY-BMS-2019-026420

PATIENT
  Age: 41 Year
  Sex: Male
  Weight: 69 kg

DRUGS (2)
  1. IPILIMUMAB [Suspect]
     Active Substance: IPILIMUMAB
     Indication: TESTICULAR GERM CELL TUMOUR
     Dosage: 1 MILLIGRAM/KILOGRAM
     Route: 042
     Dates: start: 20190219, end: 20190220
  2. NIVOLUMAB [Suspect]
     Active Substance: NIVOLUMAB
     Indication: TESTICULAR GERM CELL TUMOUR
     Dosage: 240 MILLIGRAM, Q2WK
     Route: 042
     Dates: start: 20190219, end: 20190306

REACTIONS (7)
  - Malignant neoplasm progression [Fatal]
  - Spinal cord compression [Unknown]
  - Hyponatraemia [Recovered/Resolved]
  - Respiratory failure [Unknown]
  - Acidosis [Recovered/Resolved]
  - Anaemia [Recovered/Resolved]
  - Back pain [Not Recovered/Not Resolved]

NARRATIVE: CASE EVENT DATE: 20190310
